FAERS Safety Report 4466241-2 (Version None)
Quarter: 2004Q4

REPORT INFORMATION
  Report Type: 
  Country: None (occurrence: None)
  Receive Date: 20041005
  Receipt Date: 20040924
  Transmission Date: 20050328
  Serious: Yes (Hospitalization, Other)
  Sender: FDA-Public Use
  Company Number: SE-JNJFOC-20040806470

PATIENT
  Age: 48 Year
  Sex: Male
  Weight: 60 kg

DRUGS (5)
  1. REMICADE [Suspect]
     Dosage: 21 INFUSIONS
     Route: 042
  2. METHOTREXATE [Suspect]
  3. FOLACIN [Concomitant]
  4. FOLACIN [Concomitant]
  5. CELEBREX [Concomitant]

REACTIONS (1)
  - PULMONARY TUBERCULOSIS [None]
